FAERS Safety Report 7309304-6 (Version None)
Quarter: 2011Q1

REPORT INFORMATION
  Report Type: 
  Country: None (occurrence: None)
  Receive Date: 20110223
  Receipt Date: 20110217
  Transmission Date: 20110831
  Serious: Yes (Death)
  Sender: FDA-Public Use
  Company Number: FR-ROCHE-760880

PATIENT
  Sex: Female

DRUGS (4)
  1. PACLITAXEL [Suspect]
     Indication: BREAST CANCER
     Dosage: FREQUENCY UNREPORTED. LAST DOSE PRIOR TO SAE 4 JANUARY 2011.
     Route: 065
     Dates: start: 20101102, end: 20110104
  2. CORTICOTHERAPY [Concomitant]
  3. BEVACIZUMAB [Suspect]
     Indication: BREAST CANCER
     Dosage: FREQUENCY UNREPORTED. LAST DOSE PRIOR TO SAE 10 JANUARY 2011.
     Route: 065
     Dates: start: 20101102, end: 20110110
  4. CAPECITABINE [Suspect]
     Indication: BREAST CANCER
     Dosage: FREQUENCY UNREPORTED. LAST DOSE PRIOR TO SAE 8 JANUARY 2011.
     Route: 065
     Dates: start: 20101102, end: 20110108

REACTIONS (2)
  - HEPATOCELLULAR INJURY [None]
  - DISSEMINATED INTRAVASCULAR COAGULATION [None]
